FAERS Safety Report 5113505-5 (Version None)
Quarter: 2006Q3

REPORT INFORMATION
  Report Type: 
  Country: None (occurrence: None)
  Receive Date: 20060921
  Receipt Date: 20060921
  Transmission Date: 20061208
  Serious: Yes (Hospitalization)
  Sender: FDA-Public Use
  Company Number: None

PATIENT
  Age: 57 Year
  Sex: Female
  Weight: 74.4 kg

DRUGS (17)
  1. TRAMADOL [Suspect]
  2. DILANTIN [Concomitant]
  3. IBUPROFEN [Concomitant]
  4. DILANTIN [Concomitant]
  5. ALBUTEROL 0.083% INHL SOLN [Concomitant]
  6. IPRATROPIUM BROMIDE 0.02% INH SOLN [Concomitant]
  7. ALBUTEROL 90/IPRATROP 18 MCG [Concomitant]
  8. CLOTRIMAZOLE [Concomitant]
  9. ANALGESIC CREAM [Concomitant]
  10. ASPIRIN [Concomitant]
  11. CALCIUM 250MG/VITAMIN D [Concomitant]
  12. FLUNISOLIDE [Concomitant]
  13. FORMOTEROL FUMARATE [Concomitant]
  14. GABAPENTIN [Concomitant]
  15. VITAMIN B COMPLEX/VITAMIN C [Concomitant]
  16. NICOTINE 14MG/24HR PATCH [Concomitant]
  17. HYPROHEPTADINE HCL [Concomitant]

REACTIONS (1)
  - CONVULSION [None]
